FAERS Safety Report 9364091 (Version 2)
Quarter: 2013Q3

REPORT INFORMATION
  Report Type: Spontaneous
  Country: FR (occurrence: FR)
  Receive Date: 20130624
  Receipt Date: 20130702
  Transmission Date: 20140515
  Serious: Yes (Other)
  Sender: FDA-Public Use
  Company Number: FR-009507513-1305FRA002129

PATIENT
  Age: 31 Year
  Sex: Female
  Weight: 62 kg

DRUGS (2)
  1. NEXPLANON [Suspect]
     Dosage: UNK
     Route: 059
     Dates: start: 20110316, end: 20130424
  2. ROACCUTANE [Concomitant]

REACTIONS (4)
  - Abortion spontaneous [Unknown]
  - Human chorionic gonadotropin positive [Recovered/Resolved]
  - Blood cholesterol increased [Unknown]
  - Acne [Unknown]
